FAERS Safety Report 21358005 (Version 2)
Quarter: 2022Q4

REPORT INFORMATION
  Report Type: Report from Study
  Country: DE (occurrence: DE)
  Receive Date: 20220921
  Receipt Date: 20221111
  Transmission Date: 20230113
  Serious: Yes (Hospitalization)
  Sender: FDA-Public Use
  Company Number: DE-MYLANLABS-2022M1083146

PATIENT
  Sex: Female

DRUGS (12)
  1. LEFLUNOMIDE [Suspect]
     Active Substance: LEFLUNOMIDE
     Indication: Rheumatoid arthritis
     Dosage: UNIT DOSE : 10 MILLIGRAM ,  THERAPY END DATE : ASKU
     Dates: start: 20180110
  2. LEFLUNOMIDE [Suspect]
     Active Substance: LEFLUNOMIDE
     Dosage: UNIT DOSE : 10 MILLIGRAM ,  THERAPY END DATE : ASKU
     Dates: start: 20180724
  3. METHOTREXATE [Suspect]
     Active Substance: METHOTREXATE
     Indication: Rheumatoid arthritis
     Dosage: UNIT DOSE :15 MILLIGRAM ,  THERAPY END DATE : ASKU
     Dates: start: 20190123
  4. METHOTREXATE [Suspect]
     Active Substance: METHOTREXATE
     Dosage: UNIT DOSE : 15 MILLIGRAM ,  THERAPY END DATE : ASKU
     Dates: start: 20180110
  5. METHOTREXATE [Suspect]
     Active Substance: METHOTREXATE
     Dosage: UNIT DOSE : 7.5 MILLIGRAM ,  THERAPY END DATE : ASKU
     Dates: start: 20190709
  6. METHOTREXATE [Suspect]
     Active Substance: METHOTREXATE
     Dosage: UNIT DOSE : 7.5 MILLIGRAM ,  THERAPY END DATE : ASKU
     Dates: start: 20170706
  7. METHOTREXATE [Suspect]
     Active Substance: METHOTREXATE
     Dosage: UNIT DOSE : 15 MILLIGRAM ,  THERAPY END DATE : ASKU
     Dates: start: 20180724
  8. METHOTREXATE [Suspect]
     Active Substance: METHOTREXATE
     Dosage: UNIT DOSE : 15 MILLIGRAM ,  THERAPY END DATE : ASKU
     Dates: start: 20161006
  9. METHOTREXATE [Suspect]
     Active Substance: METHOTREXATE
     Dosage: UNIT DOSE : 7.5 MILLIGRAM ,  THERAPY END DATE : ASKU
     Dates: start: 20200217
  10. METHOTREXATE [Suspect]
     Active Substance: METHOTREXATE
     Dosage: UNIT DOSE : 15 MILLIGRAM ,  THERAPY END DATE : ASKU
     Dates: start: 20160701
  11. METHOTREXATE [Suspect]
     Active Substance: METHOTREXATE
     Dosage: UNIT DOSE : 7.5 MILLIGRAM ,  THERAPY END DATE : ASKU
     Dates: start: 20170215
  12. ETANERCEPT [Suspect]
     Active Substance: ETANERCEPT
     Indication: Rheumatoid arthritis
     Dosage: 25 MILLIGRAM (START DATE: ) , UNIT DOSE : 25 MG, DURATION : 1 MONTH
     Dates: start: 201902, end: 201903

REACTIONS (11)
  - Rheumatoid arthritis [Recovered/Resolved]
  - Nodal osteoarthritis [Recovered/Resolved]
  - Rotator cuff syndrome [Not Recovered/Not Resolved]
  - Fibromyalgia [Not Recovered/Not Resolved]
  - Intervertebral disc protrusion [Not Recovered/Not Resolved]
  - Dermatitis allergic [Unknown]
  - Oral herpes [Recovered/Resolved]
  - Influenza like illness [Recovered/Resolved]
  - Foot fracture [Unknown]
  - Gastrointestinal infection [Unknown]
  - Nasopharyngitis [Unknown]

NARRATIVE: CASE EVENT DATE: 20171115
